FAERS Safety Report 11157459 (Version 1)
Quarter: 2015Q2

REPORT INFORMATION
  Report Type: Not Available
  Country: GB (occurrence: GB)
  Receive Date: 20150603
  Receipt Date: 20150603
  Transmission Date: 20150821
  Serious: Yes (Other)
  Sender: FDA-Public Use
  Company Number: GB-BEH-2015051513

PATIENT
  Age: 29 Year
  Sex: Female

DRUGS (5)
  1. HUMAN ANTI-D IMMUNOGLOBULIN [Suspect]
     Active Substance: HUMAN RHO(D) IMMUNE GLOBULIN
  2. HUMAN ANTI-D IMMUNOGLOBULIN [Suspect]
     Active Substance: HUMAN RHO(D) IMMUNE GLOBULIN
     Route: 042
     Dates: start: 20130409, end: 20130409
  3. HUMAN ANTI-D IMMUNOGLOBULIN [Suspect]
     Active Substance: HUMAN RHO(D) IMMUNE GLOBULIN
  4. HUMAN ANTI-D IMMUNOGLOBULIN [Suspect]
     Active Substance: HUMAN RHO(D) IMMUNE GLOBULIN
  5. HUMAN ANTI-D IMMUNOGLOBULIN [Suspect]
     Active Substance: HUMAN RHO(D) IMMUNE GLOBULIN
     Indication: RHESUS ANTIBODIES NEGATIVE

REACTIONS (8)
  - Tachycardia [Recovered/Resolved]
  - Hypertension [Recovered/Resolved]
  - Emotional distress [None]
  - Agitation [Unknown]
  - Refusal of treatment by patient [None]
  - Pyrexia [Unknown]
  - Oxygen saturation decreased [Recovered/Resolved]
  - Chills [Recovered/Resolved]

NARRATIVE: CASE EVENT DATE: 20130409
